FAERS Safety Report 5834857-4 (Version None)
Quarter: 2008Q3

REPORT INFORMATION
  Report Type: 
  Country: None (occurrence: None)
  Receive Date: 20080805
  Receipt Date: 20080805
  Transmission Date: 20090109
  Serious: Yes (Other)
  Sender: FDA-Public Use
  Company Number: None

PATIENT
  Age: 80 Year
  Sex: Female
  Weight: 56.6996 kg

DRUGS (1)
  1. ULTRAM [Suspect]
     Indication: OSTEOARTHRITIS
     Dosage: 50 MG PO AS RX'D
     Route: 048

REACTIONS (1)
  - DYSPNOEA [None]
